FAERS Safety Report 11723680 (Version 1)
Quarter: 2015Q4

REPORT INFORMATION
  Report Type: Spontaneous
  Country: US (occurrence: US)
  Receive Date: 20151111
  Receipt Date: 20151111
  Transmission Date: 20160304
  Serious: Yes (Other)
  Sender: FDA-Public Use
  Company Number: US-PFIZER INC-2015381605

PATIENT
  Age: 55 Year
  Sex: Male
  Weight: 141 kg

DRUGS (3)
  1. TIKOSYN [Suspect]
     Active Substance: DOFETILIDE
     Indication: ARRHYTHMIA
     Dosage: UNK
     Dates: end: 201504
  2. TIKOSYN [Suspect]
     Active Substance: DOFETILIDE
     Dosage: 2.5 MG, 3X/DAY
     Dates: start: 201504, end: 201504
  3. TIKOSYN [Suspect]
     Active Substance: DOFETILIDE
     Dosage: 2.5 MG, 2X/DAY
     Dates: start: 201504

REACTIONS (3)
  - Weight decreased [Unknown]
  - Drug effect incomplete [Recovered/Resolved]
  - Diabetes mellitus [Unknown]

NARRATIVE: CASE EVENT DATE: 201504
